FAERS Safety Report 10998896 (Version 1)
Quarter: 2015Q2

REPORT INFORMATION
  Report Type: Spontaneous
  Country: US (occurrence: US)
  Receive Date: 20150408
  Receipt Date: 20150408
  Transmission Date: 20150821
  Serious: No
  Sender: FDA-Public Use
  Company Number: US-SA-2014SA055454

PATIENT
  Age: 42 Year
  Sex: Female

DRUGS (2)
  1. ALLEGRA [Suspect]
     Active Substance: FEXOFENADINE HYDROCHLORIDE
     Indication: MULTIPLE ALLERGIES
     Dosage: LOT # 3JG OR 63A EXP 3/2016. CALELR SAIS YOU CAN^T TELL IF IT IS A G OR 6
     Route: 048
     Dates: start: 201311
  2. ALLEGRA [Suspect]
     Active Substance: FEXOFENADINE HYDROCHLORIDE
     Indication: MULTIPLE ALLERGIES
     Dosage: LOT # 3JG OR 63A EXP 3/2016. CALELR SAIS YOU CAN^T TELL IF IT IS A G OR 6
     Route: 048
     Dates: start: 201311

REACTIONS (4)
  - Dysgeusia [Unknown]
  - Heart rate increased [Unknown]
  - Blood pressure increased [Unknown]
  - Drug intolerance [Unknown]
